FAERS Safety Report 4303996-1 (Version None)
Quarter: 2004Q1

REPORT INFORMATION
  Report Type: 
  Country: None (occurrence: None)
  Receive Date: 20040225
  Receipt Date: 20040120
  Transmission Date: 20041129
  Serious: Yes (Hospitalization, Other)
  Sender: FDA-Public Use
  Company Number: GB-BRISTOL-MYERS SQUIBB COMPANY-12483293

PATIENT
  Age: 57 Year
  Sex: Female

DRUGS (2)
  1. PACLITAXEL [Suspect]
     Indication: OVARIAN CANCER
  2. CARBOPLATIN [Suspect]
     Indication: OVARIAN CANCER

REACTIONS (3)
  - CONSTIPATION [None]
  - HEART RATE INCREASED [None]
  - NAUSEA [None]
